FAERS Safety Report 13739176 (Version 2)
Quarter: 2018Q2

REPORT INFORMATION
  Report Type: Report from Study
  Country: US (occurrence: US)
  Receive Date: 20170710
  Receipt Date: 20180627
  Transmission Date: 20180711
  Serious: No
  Sender: FDA-Public Use
  Company Number: US-SAOL THERAPEUTICS-2017SAO00065

PATIENT
  Age: 34 Year
  Sex: Female
  Weight: 112.93 kg

DRUGS (21)
  1. COMPOUNDED BACLOFEN [Suspect]
     Active Substance: BACLOFEN
     Indication: MULTIPLE SCLEROSIS
     Dosage: 585.3 ?G, \DAY - MAX
     Route: 037
     Dates: start: 20170615, end: 20170914
  2. DILAUDID [Suspect]
     Active Substance: HYDROMORPHONE HYDROCHLORIDE
     Dosage: 1.6108 MG, \DAY - MAX
     Route: 037
     Dates: start: 20170615, end: 20170914
  3. DILAUDID [Suspect]
     Active Substance: HYDROMORPHONE HYDROCHLORIDE
     Dosage: 0.8334 MG, \DAY
     Route: 037
     Dates: start: 20170914, end: 20171206
  4. DILAUDID [Suspect]
     Active Substance: HYDROMORPHONE HYDROCHLORIDE
     Dosage: 1.5173 MG, \DAY - MAX
     Route: 037
     Dates: start: 20170914, end: 20171206
  5. DILAUDID [Suspect]
     Active Substance: HYDROMORPHONE HYDROCHLORIDE
     Dosage: 1.5173 MG, \DAY - MAX
     Route: 037
     Dates: end: 20170914
  6. COMPOUNDED BACLOFEN [Suspect]
     Active Substance: BACLOFEN
     Dosage: 330 ?G, \DAY
     Route: 037
     Dates: end: 20171206
  7. DILAUDID [Suspect]
     Active Substance: HYDROMORPHONE HYDROCHLORIDE
     Dosage: 0.9358 MG, \DAY
     Route: 037
     Dates: start: 20170615, end: 20170914
  8. COMPOUNDED BACLOFEN [Suspect]
     Active Substance: BACLOFEN
     Indication: MULTIPLE SCLEROSIS
     Dosage: 546.22 ?G, \DAY - MAX
     Route: 037
     Dates: start: 20170914
  9. DILAUDID [Suspect]
     Active Substance: HYDROMORPHONE HYDROCHLORIDE
     Dosage: 0.9167 MG, \DAY
     Route: 037
     Dates: start: 20170914, end: 20171206
  10. DILAUDID [Suspect]
     Active Substance: HYDROMORPHONE HYDROCHLORIDE
     Dosage: 1.937 MG, \DAY MAX
     Route: 037
  11. COMPOUNDED BACLOFEN [Suspect]
     Active Substance: BACLOFEN
     Indication: MUSCLE SPASTICITY
     Dosage: 330.25 ?G, \DAY
     Route: 037
     Dates: start: 20171206
  12. DILAUDID [Suspect]
     Active Substance: HYDROMORPHONE HYDROCHLORIDE
     Dosage: 0.8256 ?G, \DAY
     Route: 037
     Dates: start: 20171206
  13. DILAUDID [Suspect]
     Active Substance: HYDROMORPHONE HYDROCHLORIDE
     Dosage: 1.238 MG, \DAY
     Route: 037
     Dates: start: 20160303
  14. COMPOUNDED BACLOFEN [Suspect]
     Active Substance: BACLOFEN
     Indication: MUSCLE SPASTICITY
     Dosage: 340 ?G, \DAY
     Route: 037
     Dates: start: 20170615, end: 20170914
  15. DILAUDID [Suspect]
     Active Substance: HYDROMORPHONE HYDROCHLORIDE
     Dosage: 1.1937 ?G, \DAY
     Route: 037
     Dates: start: 20171206
  16. DILAUDID [Suspect]
     Active Substance: HYDROMORPHONE HYDROCHLORIDE
     Dosage: 1.9167 MG, /DAY
  17. COMPOUNDED BACLOFEN [Suspect]
     Active Substance: BACLOFEN
     Indication: MUSCLE SPASTICITY
     Dosage: 300.03 ?G, \DAY
     Route: 037
     Dates: start: 20170914
  18. COMPOUNDED BACLOFEN [Suspect]
     Active Substance: BACLOFEN
     Indication: MULTIPLE SCLEROSIS
     Dosage: 477.46 ?G, \DAY - MAX
     Route: 037
     Dates: start: 20171206
  19. COMPOUNDED BACLOFEN [Suspect]
     Active Substance: BACLOFEN
     Indication: MUSCLE SPASTICITY
     Dosage: 450.2 ?G, \DAY
     Route: 037
     Dates: start: 20160303
  20. COMPOUNDED BACLOFEN [Suspect]
     Active Substance: BACLOFEN
     Indication: MULTIPLE SCLEROSIS
     Dosage: 697.0 ?G /DAY
     Dates: start: 20160303
  21. COMPOUNDED BACLOFEN [Suspect]
     Active Substance: BACLOFEN
     Dosage: 546.22 ?G, \DAY - MAX
     Route: 037
     Dates: end: 20170914

REACTIONS (5)
  - Medical device site pain [Not Recovered/Not Resolved]
  - Fatigue [Not Recovered/Not Resolved]
  - Pain [Recovered/Resolved]
  - Device failure [Recovered/Resolved]
  - Therapeutic response decreased [Recovered/Resolved]

NARRATIVE: CASE EVENT DATE: 20160616
